FAERS Safety Report 24445035 (Version 1)
Quarter: 2024Q4

REPORT INFORMATION
  Report Type: Spontaneous
  Country: CN (occurrence: CN)
  Receive Date: 20241016
  Receipt Date: 20241016
  Transmission Date: 20250114
  Serious: No
  Sender: MERCK
  Company Number: CN-009507513-2409CHN007945

PATIENT
  Age: 83 Year
  Sex: Male

DRUGS (1)
  1. LAGEVRIO [Suspect]
     Active Substance: MOLNUPIRAVIR
     Indication: COVID-19 treatment
     Dosage: 0.8 G, BID
     Route: 048
     Dates: start: 20240830, end: 20240830

REACTIONS (3)
  - Alanine aminotransferase increased [Recovering/Resolving]
  - Aspartate aminotransferase increased [Recovering/Resolving]
  - Incorrect product administration duration [Unknown]

NARRATIVE: CASE EVENT DATE: 20240830
